FAERS Safety Report 8228860-7 (Version None)
Quarter: 2012Q1

REPORT INFORMATION
  Report Type: 
  Country: None (occurrence: None)
  Receive Date: 20120322
  Receipt Date: 20120307
  Transmission Date: 20120608
  Serious: Yes (Other)
  Sender: FDA-Public Use
  Company Number: GB-WATSON-2012-04596

PATIENT
  Age: 38 Year
  Sex: Female

DRUGS (2)
  1. CABERGOLINE [Suspect]
     Indication: MENSTRUAL CYCLE MANAGEMENT
     Dosage: UNKNOWN
     Route: 065
  2. CABERGOLINE [Suspect]
     Indication: GYNAECOLOGICAL EXAMINATION
     Dosage: 250 UG, UNKNOWN, MONDAY TO FRIDAY ONLY
     Route: 065
     Dates: start: 20120101

REACTIONS (1)
  - NEOPLASM [None]
